FAERS Safety Report 13627775 (Version 1)
Quarter: 2017Q2

REPORT INFORMATION
  Report Type: Spontaneous
  Country: US (occurrence: US)
  Receive Date: 20170531
  Receipt Date: 20170531
  Transmission Date: 20170830
  Serious: Yes (Death, Life-Threatening, Other)
  Sender: FDA-Public Use
  Company Number: US-ASTELLAS-1585292

PATIENT
  Age: 67 Year
  Sex: Female
  Weight: 83.2 kg

DRUGS (7)
  1. ASPIRIN. [Concomitant]
     Active Substance: ASPIRIN
     Route: 048
  2. TEMAZEPAM. [Concomitant]
     Active Substance: TEMAZEPAM
     Dosage: EVERY BEDTIME PRN INDICATIOPN SLEEP.
     Route: 048
  3. HCTZ [Concomitant]
     Active Substance: HYDROCHLOROTHIAZIDE
     Indication: HYPERTENSION
     Route: 048
  4. TARCEVA [Suspect]
     Active Substance: ERLOTINIB HYDROCHLORIDE
     Indication: LUNG NEOPLASM MALIGNANT
     Route: 048
     Dates: start: 20131004, end: 20150213
  5. PROMETHAZINE [Concomitant]
     Active Substance: PROMETHAZINE\PROMETHAZINE HYDROCHLORIDE
     Indication: NAUSEA
     Dosage: PRN. EVERY 4 HOUR
     Route: 048
  6. TARCEVA [Suspect]
     Active Substance: ERLOTINIB HYDROCHLORIDE
     Indication: NON-SMALL CELL LUNG CANCER
  7. XARELTO [Suspect]
     Active Substance: RIVAROXABAN
     Indication: EMBOLISM VENOUS
     Route: 048

REACTIONS (3)
  - Lung cancer metastatic [Fatal]
  - Embolic stroke [Recovering/Resolving]
  - Cerebrovascular accident [Unknown]

NARRATIVE: CASE EVENT DATE: 201502
